FAERS Safety Report 7765762-4 (Version None)
Quarter: 2011Q3

REPORT INFORMATION
  Report Type: 
  Country: None (occurrence: None)
  Receive Date: 20110921
  Receipt Date: 20110912
  Transmission Date: 20111222
  Serious: Yes (Other)
  Sender: FDA-Public Use
  Company Number: US-US-EMD SERONO, INC.-7082843

PATIENT
  Sex: Female

DRUGS (3)
  1. AMANTADINE HCL [Concomitant]
  2. CELEXA [Concomitant]
  3. REBIF [Suspect]
     Indication: MULTIPLE SCLEROSIS
     Dates: start: 20110712, end: 20110909

REACTIONS (4)
  - VERTIGO [None]
  - FATIGUE [None]
  - ELECTROENCEPHALOGRAM ABNORMAL [None]
  - DIZZINESS [None]
